FAERS Safety Report 15440946 (Version 1)
Quarter: 2018Q3

REPORT INFORMATION
  Report Type: Spontaneous
  Country: BR (occurrence: BR)
  Receive Date: 20180928
  Receipt Date: 20180928
  Transmission Date: 20181010
  Serious: Yes (Other)
  Sender: FDA-Public Use
  Company Number: BR-JNJFOC-20180925568

PATIENT
  Sex: Male
  Weight: 32 kg

DRUGS (3)
  1. RISPERDAL [Suspect]
     Active Substance: RISPERIDONE
     Indication: ATTENTION DEFICIT/HYPERACTIVITY DISORDER
     Route: 065
     Dates: start: 201710
  2. CONCERTA [Suspect]
     Active Substance: METHYLPHENIDATE HYDROCHLORIDE
     Indication: ATTENTION DEFICIT/HYPERACTIVITY DISORDER
     Dosage: OR ABOUT 4 MONTHS
     Route: 065
     Dates: start: 2018
  3. CONCERTA [Suspect]
     Active Substance: METHYLPHENIDATE HYDROCHLORIDE
     Indication: ATTENTION DEFICIT/HYPERACTIVITY DISORDER
     Route: 065
     Dates: start: 201801, end: 2018

REACTIONS (6)
  - Cardiac murmur [Unknown]
  - Tachycardia [Unknown]
  - Off label use [Unknown]
  - Chest pain [Unknown]
  - Product use in unapproved indication [Unknown]
  - Palpitations [Unknown]

NARRATIVE: CASE EVENT DATE: 2018
